FAERS Safety Report 22157310 (Version 3)
Quarter: 2024Q4

REPORT INFORMATION
  Report Type: Report from Study
  Country: GB (occurrence: GB)
  Receive Date: 20230330
  Receipt Date: 20241211
  Transmission Date: 20250114
  Serious: Yes (Death, Hospitalization, Other)
  Sender: NOVARTIS
  Company Number: GB-002147023-NVSC2023GB072841

PATIENT
  Age: 72 Year
  Sex: Male

DRUGS (1)
  1. PLUVICTO [Suspect]
     Active Substance: LUTETIUM LU-177 VIPIVOTIDE TETRAXETAN
     Indication: Hormone-refractory prostate cancer
     Dosage: UNK, CYCLE 1
     Route: 042
     Dates: start: 20221222, end: 20221222

REACTIONS (5)
  - Bone marrow failure [Fatal]
  - Pancytopenia [Unknown]
  - Gingival bleeding [Unknown]
  - Ill-defined disorder [Unknown]
  - Blood alkaline phosphatase increased [Unknown]

NARRATIVE: CASE EVENT DATE: 20221222
